FAERS Safety Report 6537752-0 (Version None)
Quarter: 2010Q1

REPORT INFORMATION
  Report Type: 
  Country: None (occurrence: None)
  Receive Date: 20100111
  Receipt Date: 20091229
  Transmission Date: 20100710
  Serious: Yes (Hospitalization, Other)
  Sender: FDA-Public Use
  Company Number: 2010AL000075

PATIENT
  Age: 56 Year
  Sex: Male

DRUGS (20)
  1. RAMIPRIL [Suspect]
     Dosage: 1.25 MG; PO
     Route: 048
     Dates: start: 20090113, end: 20090122
  2. FUROSEMIDE [Concomitant]
  3. EPILIM CHRONO [Concomitant]
  4. SULPIRIDE [Concomitant]
  5. QUETIAPINE [Concomitant]
  6. IPRATROPIUM BROMIDE [Concomitant]
  7. ALBUTEROL [Concomitant]
  8. SERETIDE [Concomitant]
  9. MONTELUKAST SODIUM [Concomitant]
  10. ISOSORBIDE MONONITRATE [Concomitant]
  11. ACETYLSALICYLIC ACID [Concomitant]
  12. AMINOPHYLLINE [Concomitant]
  13. AMOXICILLIN AND CLAVULANATE POTASSIUM [Concomitant]
  14. LACTULOSE [Concomitant]
  15. LIQUID PARAFFIN [Concomitant]
  16. LORAZEPAM [Concomitant]
  17. PARACETAMOL [Concomitant]
  18. PREDNISOLONE [Concomitant]
  19. SENNA [Concomitant]
  20. THEOPHYLLINE [Concomitant]

REACTIONS (7)
  - CYANOSIS [None]
  - FLUID OVERLOAD [None]
  - HYPERPHAGIA [None]
  - HYPOTENSION [None]
  - LOWER RESPIRATORY TRACT INFECTION [None]
  - SEPSIS [None]
  - SPUTUM DISCOLOURED [None]
